FAERS Safety Report 9221504 (Version 1)
Quarter: 2013Q1

REPORT INFORMATION
  Report Type: Spontaneous
  Country: US (occurrence: None)
  Receive Date: 20120831
  Receipt Date: 20120831
  Transmission Date: 20140127
  Serious: Yes (Hospitalization)
  Sender: FDA-Public Use
  Company Number: 1000030354

PATIENT
  Age: 65 Year
  Sex: Female

DRUGS (1)
  1. DALIRESP [Suspect]

REACTIONS (2)
  - Chronic obstructive pulmonary disease [None]
  - Feeling jittery [None]
